FAERS Safety Report 4994869-X (Version None)
Quarter: 2006Q2

REPORT INFORMATION
  Report Type: 
  Country: None (occurrence: None)
  Receive Date: 20060503
  Receipt Date: 20060418
  Transmission Date: 20061013
  Serious: Yes (Other)
  Sender: FDA-Public Use
  Company Number: US-2006-009147

PATIENT
  Age: 75 Year
  Sex: Male
  Weight: 69.4 kg

DRUGS (9)
  1. FLUDARA [Suspect]
     Indication: CHRONIC LYMPHOCYTIC LEUKAEMIA
     Dosage: 25 MG/M2, INTRAVENOUS
     Route: 042
     Dates: start: 20060321, end: 20060323
  2. PREVACID [Concomitant]
  3. FOSAMAX [Concomitant]
  4. IRON (IRON) [Concomitant]
  5. ASCORBIC ACID [Concomitant]
  6. DANAZOL [Concomitant]
  7. LOPRESSOR [Concomitant]
  8. COLACE (DOCUSATE SODIUM) [Concomitant]
  9. FLOMAX [Concomitant]

REACTIONS (1)
  - STEVENS-JOHNSON SYNDROME [None]
